FAERS Safety Report 9689419 (Version 2)
Quarter: 2013Q4

REPORT INFORMATION
  Report Type: Report from Study
  Country: US (occurrence: US)
  Receive Date: 20131114
  Receipt Date: 20131114
  Transmission Date: 20140711
  Serious: Yes (Hospitalization)
  Sender: FDA-Public Use
  Company Number: PHHO2013US004902

PATIENT
  Age: 8 Year
  Sex: Male
  Weight: 25.7 kg

DRUGS (20)
  1. INTERLEUKIN-2 [Suspect]
     Indication: NEUROBLASTOMA
     Dosage: 4.1 IUM, QD
     Route: 042
     Dates: start: 20130218, end: 20130301
  2. CYPROHEPTADINE [Suspect]
     Indication: CACHEXIA
     Dosage: 4 MG, TID
     Route: 048
     Dates: start: 20130312, end: 20130321
  3. ISOTRETINOIN [Suspect]
     Indication: NEUROBLASTOMA
     Dosage: 160 MG, QD
     Route: 048
     Dates: start: 20130304
  4. GRANULOCYTE MACROPHAGE COLONY STIM FACTOR [Concomitant]
     Indication: NEUROBLASTOMA
     Dosage: 230 UG, QD
     Route: 058
     Dates: start: 20130125, end: 20130207
  5. SALBUTAMOL [Concomitant]
     Indication: ASTHMA
     Dosage: 2 PUFFS AS NEEDED
     Dates: start: 20130125
  6. CITALOPRAM [Concomitant]
     Indication: DEPRESSION
     Dosage: 10 MG, QD
     Route: 048
     Dates: start: 20130125
  7. MULTIVITAMINS [Concomitant]
     Dosage: 1 DF, QD
     Route: 048
     Dates: start: 20130125
  8. DRONABINOL [Concomitant]
     Indication: NAUSEA
     Dosage: 2.5 MG, BID
     Route: 048
     Dates: start: 20130201
  9. OMEPRAZOLE [Concomitant]
     Indication: GASTRITIS
     Dosage: 20 MG, QD (EVERY EVENING)
     Route: 048
     Dates: start: 20130125
  10. PENTAMIDINE [Concomitant]
     Indication: PROPHYLAXIS
     Dosage: 300 MG, QW4
     Dates: start: 20130125
  11. ONDANSETRON [Concomitant]
     Indication: NAUSEA
     Dosage: 4 MG, BID
     Route: 048
     Dates: start: 20130125
  12. MORPHINE [Concomitant]
     Indication: PAIN
     Dosage: 1 MG/H, UNK
     Route: 042
     Dates: start: 20130225, end: 20130301
  13. PARACETAMOL [Concomitant]
     Indication: PYREXIA
     Dosage: 325 MG, BID
     Route: 048
     Dates: start: 20130225, end: 20130228
  14. LASIX [Concomitant]
     Indication: FLUID RETENTION
     Dosage: 20 MG, UNK
     Route: 042
     Dates: start: 20130226, end: 20130226
  15. MAGNESIUM SULFATE [Concomitant]
     Indication: HYPOMAGNESAEMIA
     Dosage: 1250 MG, PRN
     Route: 042
     Dates: start: 20130225, end: 20130301
  16. POTASSIUM CHLORIDE [Concomitant]
     Indication: HYPOKALAEMIA
     Dosage: 13 MEQ, PRN
     Route: 042
     Dates: start: 20130225, end: 20130301
  17. PANTOPRAZOLE [Concomitant]
     Indication: GASTRITIS
     Dosage: 20 MG, UNK
     Route: 048
     Dates: start: 20130225, end: 20130301
  18. VANCOMYCIN [Concomitant]
     Dosage: 350 MG, UNK
     Route: 042
     Dates: start: 20130228, end: 20130228
  19. LORAZEPAM [Concomitant]
     Indication: ANXIETY
     Dosage: 1 MG, PRN
     Route: 042
     Dates: start: 20130228, end: 20130228
  20. PHYTOMENADIONE [Concomitant]
     Indication: VITAMIN SUPPLEMENTATION
     Dosage: 5 MG, QD
     Route: 048
     Dates: start: 20130227, end: 20130228

REACTIONS (3)
  - Palpitations [Recovered/Resolved]
  - Mucosal infection [Recovered/Resolved]
  - Anaemia [Recovering/Resolving]
